FAERS Safety Report 11133458 (Version 1)
Quarter: 2015Q2

REPORT INFORMATION
  Report Type: Spontaneous
  Country: US (occurrence: US)
  Receive Date: 20150522
  Receipt Date: 20150522
  Transmission Date: 20150821
  Serious: Yes (Other)
  Sender: FDA-Public Use
  Company Number: US-ALLERGAN-1501563US

PATIENT
  Age: 85 Year
  Sex: Female
  Weight: 92.63 kg

DRUGS (17)
  1. TIMOLOL SANDOZ [Concomitant]
     Active Substance: TIMOLOL
     Indication: GLAUCOMA
     Dosage: 1 GTT, QAM
     Route: 047
     Dates: start: 20150118
  2. BABY ASPIRIN [Concomitant]
     Active Substance: ASPIRIN
     Dosage: 81 MG, UNK
  3. FUROSEMIDE. [Concomitant]
     Active Substance: FUROSEMIDE
     Dosage: 40 MG, QOD
     Route: 048
  4. LIDODERM [Concomitant]
     Active Substance: LIDOCAINE
     Indication: BACK PAIN
     Dosage: UNK
  5. MIRALAX [Concomitant]
     Active Substance: POLYETHYLENE GLYCOL 3350
     Indication: FAECES HARD
     Dosage: UNK UNK, BID
  6. METOPROLOL [Concomitant]
     Active Substance: METOPROLOL
     Dosage: 50 MG, BID
  7. WARFARIN [Concomitant]
     Active Substance: WARFARIN
     Dosage: 4 MG, QD
     Route: 048
  8. FOLIC ACID. [Concomitant]
     Active Substance: FOLIC ACID
     Dosage: UNK
  9. VITAMIN C [Concomitant]
     Active Substance: ASCORBIC ACID
  10. ZOCOR [Concomitant]
     Active Substance: SIMVASTATIN
     Dosage: 10 MG, UNK
  11. BENICAR [Concomitant]
     Active Substance: OLMESARTAN MEDOXOMIL
     Dosage: 40 MG, UNK
  12. ALPHAGAN P [Suspect]
     Active Substance: BRIMONIDINE TARTRATE
     Indication: GLAUCOMA
     Dosage: UNK UNK, BID
     Route: 047
     Dates: start: 1995, end: 2014
  13. XALATAN [Suspect]
     Active Substance: LATANOPROST
     Indication: GLAUCOMA
     Dosage: 1 GTT, UNK
     Route: 047
     Dates: start: 1982
  14. AMIODARONE [Concomitant]
     Active Substance: AMIODARONE
     Indication: ARRHYTHMIA
     Dosage: 81 MG, UNK
  15. CLARITIN [Concomitant]
     Active Substance: LORATADINE
     Indication: HYPERSENSITIVITY
     Dosage: 10 MG, UNK
  16. ALPRAZOLAM. [Concomitant]
     Active Substance: ALPRAZOLAM
     Indication: ANXIETY
     Dosage: UNK
  17. VITAMIN D [Concomitant]
     Active Substance: CHOLECALCIFEROL
     Dosage: 100 UNITS, UNK

REACTIONS (8)
  - Corneal disorder [Unknown]
  - Blister [Unknown]
  - Eye colour change [Unknown]
  - Eyelash discolouration [Unknown]
  - Blepharitis [Not Recovered/Not Resolved]
  - Visual field defect [Unknown]
  - Eyelid cyst [Unknown]
  - Eye irritation [Unknown]

NARRATIVE: CASE EVENT DATE: 201210
